FAERS Safety Report 5603752-8 (Version None)
Quarter: 2008Q1

REPORT INFORMATION
  Report Type: 
  Country: None (occurrence: None)
  Receive Date: 20080128
  Receipt Date: 20080121
  Transmission Date: 20080703
  Serious: Yes (Death, Hospitalization)
  Sender: FDA-Public Use
  Company Number: DE-BAYER-200610002BVD

PATIENT
  Age: 64 Year
  Sex: Male
  Weight: 68 kg

DRUGS (4)
  1. SORAFENIB [Suspect]
     Indication: RENAL CELL CARCINOMA
     Dosage: TOTAL DAILY DOSE: 800 MG  UNIT DOSE: 400 MG
     Route: 048
     Dates: start: 20041201
  2. SORAFENIB [Suspect]
     Dosage: TOTAL DAILY DOSE: 800 MG  UNIT DOSE: 400 MG
     Route: 048
     Dates: start: 20051102
  3. IMODIUM [Concomitant]
     Indication: DIARRHOEA
     Route: 048
     Dates: start: 20050301
  4. PANTOZOL [Concomitant]
     Indication: GASTRITIS
     Route: 048
     Dates: start: 20050301

REACTIONS (2)
  - DYSPNOEA [None]
  - METASTATIC RENAL CELL CARCINOMA [None]
